FAERS Safety Report 11821363 (Version 1)
Quarter: 2015Q4

REPORT INFORMATION
  Report Type: Spontaneous
  Country: US (occurrence: US)
  Receive Date: 20151210
  Receipt Date: 20151210
  Transmission Date: 20160305
  Serious: No
  Sender: FDA-Public Use
  Company Number: US-JNJFOC-20150819980

PATIENT
  Age: 85 Year
  Sex: Female

DRUGS (8)
  1. IMBRUVICA [Suspect]
     Active Substance: IBRUTINIB
     Indication: CHRONIC LYMPHOCYTIC LEUKAEMIA
     Route: 048
     Dates: start: 20140422, end: 201507
  2. CRESTOR [Concomitant]
     Active Substance: ROSUVASTATIN CALCIUM
  3. ELIQUIS [Concomitant]
     Active Substance: APIXABAN
  4. TAMBOCOR [Concomitant]
     Active Substance: FLECAINIDE ACETATE
  5. LOPRESSOR [Concomitant]
     Active Substance: METOPROLOL TARTRATE
  6. ATIVAN [Concomitant]
     Active Substance: LORAZEPAM
  7. NORVASC [Concomitant]
     Active Substance: AMLODIPINE BESYLATE
  8. HYDROCODONE [Concomitant]
     Active Substance: HYDROCODONE

REACTIONS (5)
  - Nervousness [Unknown]
  - Malaise [Unknown]
  - Incorrect dose administered [Recovered/Resolved]
  - Fatigue [Unknown]
  - Pruritus [Unknown]

NARRATIVE: CASE EVENT DATE: 20140422
